FAERS Safety Report 14895414 (Version 2)
Quarter: 2018Q4

REPORT INFORMATION
  Report Type: Spontaneous
  Country: FR (occurrence: FR)
  Receive Date: 20180515
  Receipt Date: 20181025
  Transmission Date: 20190204
  Serious: Yes (Other)
  Sender: FDA-Public Use
  Company Number: FR-MERCK KGAA-2047751

PATIENT
  Age: 63 Year
  Sex: Female

DRUGS (1)
  1. EUTHYROX [Suspect]
     Active Substance: LEVOTHYROXINE SODIUM
     Indication: PRODUCT USED FOR UNKNOWN INDICATION
     Dates: end: 2017

REACTIONS (13)
  - Tachycardia [Recovering/Resolving]
  - Social avoidant behaviour [Recovering/Resolving]
  - Muscle spasms [Recovering/Resolving]
  - Periorbital oedema [Recovering/Resolving]
  - Sleep disorder [Recovering/Resolving]
  - Blood thyroid stimulating hormone decreased [None]
  - Migraine [Recovering/Resolving]
  - Myalgia [Recovering/Resolving]
  - Wrist fracture [Recovering/Resolving]
  - Fall [Recovering/Resolving]
  - Impaired driving ability [Recovering/Resolving]
  - Asthenia [Recovering/Resolving]
  - Loss of personal independence in daily activities [Recovering/Resolving]

NARRATIVE: CASE EVENT DATE: 20170208
